FAERS Safety Report 4320715-3 (Version None)
Quarter: 2004Q1

REPORT INFORMATION
  Report Type: 
  Country: None (occurrence: None)
  Receive Date: 20040318
  Receipt Date: 20040303
  Transmission Date: 20041129
  Serious: Yes (Disabling)
  Sender: FDA-Public Use
  Company Number: 233918

PATIENT
  Age: 76 Year
  Sex: Male
  Weight: 67 kg

DRUGS (7)
  1. NOVONORM (REPAGLINIDE) TABLET, 1.0MG [Suspect]
     Indication: HYPERGLYCAEMIA
     Dosage: 4 MG, QID, PER ORAL
     Route: 048
     Dates: start: 20030615
  2. PROPRANOLOL [Concomitant]
  3. PREDNISONE [Concomitant]
  4. AZATHIOPRINE [Concomitant]
  5. ALDACTAZINE (ALTIZIDE, SPIRONOLACTONE) [Concomitant]
  6. PREDNISONE [Concomitant]
  7. AZATHIOPRINE [Concomitant]

REACTIONS (14)
  - ATAXIA [None]
  - BACK PAIN [None]
  - GAIT DISTURBANCE [None]
  - HYPERGLYCAEMIA [None]
  - HYPOAESTHESIA [None]
  - HYPOREFLEXIA [None]
  - LUNG DISORDER [None]
  - MOTOR DYSFUNCTION [None]
  - MUSCLE CRAMP [None]
  - NEUROPATHY PERIPHERAL [None]
  - PAIN IN EXTREMITY [None]
  - PALLANAESTHESIA [None]
  - POLYNEUROPATHY [None]
  - TREMOR [None]
